FAERS Safety Report 11591039 (Version 2)
Quarter: 2017Q4

REPORT INFORMATION
  Report Type: Spontaneous
  Country: US (occurrence: US)
  Receive Date: 20151003
  Receipt Date: 20171106
  Transmission Date: 20180320
  Serious: Yes (Other)
  Sender: FDA-Public Use
  Company Number: US-SUN PHARMACEUTICAL INDUSTRIES LTD-2015US-103856

PATIENT
  Age: 36 Year
  Sex: Male

DRUGS (4)
  1. LOSARTAN. [Concomitant]
     Active Substance: LOSARTAN
     Indication: HYPERTENSION
     Dosage: 25 MG, DAILY
     Route: 048
  2. NAPROXEN. [Concomitant]
     Active Substance: NAPROXEN
     Indication: MIGRAINE
     Dosage: 275 MG, BID
     Route: 048
  3. AMITRIPTYLINE [Suspect]
     Active Substance: AMITRIPTYLINE
     Indication: MIGRAINE
     Dosage: 10 MG, QD (AT BED TIME)
     Route: 048
  4. HYDROCHLOROTHIAZIDE. [Concomitant]
     Active Substance: HYDROCHLOROTHIAZIDE
     Indication: HYPERTENSION
     Dosage: 25 MG, DAILY
     Route: 048

REACTIONS (2)
  - False positive investigation result [Recovered/Resolved]
  - Sleep apnoea syndrome [Unknown]
